FAERS Safety Report 10170640 (Version 1)
Quarter: 2014Q2

REPORT INFORMATION
  Report Type: Other
  Country: IT (occurrence: IT)
  Receive Date: 20140514
  Receipt Date: 20140514
  Transmission Date: 20141212
  Serious: Yes (Hospitalization)
  Sender: FDA-Public Use
  Company Number: IT-SUN PHARMACEUTICAL INDUSTRIES LTD-2014SUN01033

PATIENT
  Sex: 0

DRUGS (1)
  1. CARBOPLATINO SUN 10 MG/ML CONCENTRATO PER SOLUZIONE PER INFUSIONE [Suspect]
     Indication: CHEMOTHERAPY
     Dosage: 524 MG, CYCLIC
     Route: 042
     Dates: start: 20140410, end: 20140410

REACTIONS (6)
  - Vertigo [Recovered/Resolved]
  - Hyperhidrosis [Recovered/Resolved]
  - Tachycardia [Recovered/Resolved]
  - Visual impairment [Recovered/Resolved]
  - Paraesthesia [Recovered/Resolved]
  - Rash [Recovered/Resolved]
